FAERS Safety Report 8492592-0 (Version None)
Quarter: 2012Q3

REPORT INFORMATION
  Report Type: 
  Country: None (occurrence: None)
  Receive Date: 20120706
  Receipt Date: 20120628
  Transmission Date: 20120928
  Serious: Yes (Death, Hospitalization)
  Sender: FDA-Public Use
  Company Number: US-CELGENEUS-163-20785-12063824

PATIENT
  Age: 80 Year
  Sex: Male
  Weight: 82.1 kg

DRUGS (9)
  1. MELPHALAN HYDROCHLORIDE [Suspect]
     Dosage: DOSE REDUCTION
     Route: 048
     Dates: start: 20120613, end: 20120616
  2. PREDNISONE [Suspect]
     Dosage: 100 MILLIGRAM
     Route: 048
     Dates: start: 20111130
  3. PREDNISONE [Suspect]
     Dosage: 100 MILLIGRAM
     Route: 048
     Dates: start: 20120613, end: 20120616
  4. THALOMID [Suspect]
     Dosage: 100 MILLIGRAM
     Route: 048
     Dates: start: 20111130
  5. MELPHALAN HYDROCHLORIDE [Suspect]
     Dosage: 9 MILLIGRAM/SQ. METER
     Route: 048
     Dates: start: 20111130
  6. MORPHINE [Concomitant]
     Route: 065
  7. ASPIRIN [Concomitant]
     Dosage: 325 MILLIGRAM
     Route: 048
  8. STEROIDS [Concomitant]
     Route: 041
  9. THALOMID [Suspect]
     Dosage: 100 MILLIGRAM
     Route: 048
     Dates: start: 20120613, end: 20120620

REACTIONS (2)
  - BRAIN OEDEMA [None]
  - BRAIN SCAN ABNORMAL [None]
